FAERS Safety Report 8119148-3 (Version None)
Quarter: 2012Q1

REPORT INFORMATION
  Report Type: 
  Country: None (occurrence: None)
  Receive Date: 20120207
  Receipt Date: 20120207
  Transmission Date: 20120608
  Serious: Yes (Other)
  Sender: FDA-Public Use
  Company Number: None

PATIENT
  Age: 63 Year
  Sex: Female
  Weight: 99.79 kg

DRUGS (1)
  1. NIGHTITME SLEEP AID [Suspect]
     Indication: INSOMNIA
     Dosage: 25MG-1 CAPLET-
     Route: 048
     Dates: start: 20120131, end: 20120131

REACTIONS (1)
  - DRUG DISPENSING ERROR [None]
